FAERS Safety Report 9091948 (Version 1)
Quarter: 2013Q1

REPORT INFORMATION
  Report Type: Report from Study
  Country: US (occurrence: US)
  Receive Date: 20130131
  Receipt Date: 20130131
  Transmission Date: 20140127
  Serious: No
  Sender: FDA-Public Use
  Company Number: US-ABBOTT-12P-163-1003720-00

PATIENT
  Sex: Female
  Weight: 77.18 kg

DRUGS (6)
  1. HUMIRA [Suspect]
     Indication: PSORIATIC ARTHROPATHY
     Dates: start: 201201
  2. HUMIRA [Suspect]
     Indication: PSORIASIS
  3. ARAVA [Concomitant]
     Indication: PSORIATIC ARTHROPATHY
  4. VICODIN [Concomitant]
     Indication: PAIN
  5. ROBAXIN [Concomitant]
     Indication: ARTHRITIS
  6. AMBIEN [Concomitant]
     Indication: INSOMNIA

REACTIONS (3)
  - Lymphadenopathy [Recovered/Resolved]
  - Sinusitis [Recovered/Resolved]
  - Nasopharyngitis [Recovered/Resolved]
